FAERS Safety Report 10052112 (Version 1)
Quarter: 2014Q2

REPORT INFORMATION
  Report Type: Spontaneous
  Country: US (occurrence: None)
  Receive Date: 20140401
  Receipt Date: 20140401
  Transmission Date: 20141212
  Serious: No
  Sender: FDA-Public Use
  Company Number: None

PATIENT
  Age: 55 Year
  Sex: Female
  Weight: 51.8 kg

DRUGS (1)
  1. DIVALPROEX SODIUM [Suspect]
     Indication: BIPOLAR I DISORDER
     Route: 048
     Dates: start: 2013

REACTIONS (7)
  - Asthenia [None]
  - Dizziness [None]
  - Flatulence [None]
  - Vomiting [None]
  - Gait disturbance [None]
  - Somnolence [None]
  - Diplopia [None]
